FAERS Safety Report 11852585 (Version 1)
Quarter: 2015Q4

REPORT INFORMATION
  Report Type: Spontaneous
  Country: US (occurrence: US)
  Receive Date: 20151218
  Receipt Date: 20151218
  Transmission Date: 20160305
  Serious: Yes (Other)
  Sender: FDA-Public Use
  Company Number: US-BAYER-2015-489477

PATIENT
  Age: 74 Year
  Sex: Female
  Weight: 79.37 kg

DRUGS (1)
  1. ALEVE [Suspect]
     Active Substance: NAPROXEN SODIUM
     Indication: ARTHRITIS
     Dosage: 2 DF, QD
     Route: 048
     Dates: start: 2000

REACTIONS (5)
  - Gastric ulcer [Recovered/Resolved]
  - Gastric ulcer haemorrhage [Recovered/Resolved]
  - Myocardial infarction [Recovered/Resolved]
  - Knee arthroplasty [None]
  - Product use issue [None]

NARRATIVE: CASE EVENT DATE: 2000
